FAERS Safety Report 11278439 (Version 3)
Quarter: 2015Q4

REPORT INFORMATION
  Report Type: Report from Study
  Country: US (occurrence: US)
  Receive Date: 20150717
  Receipt Date: 20151126
  Transmission Date: 20160304
  Serious: Yes (Hospitalization, Other)
  Sender: FDA-Public Use
  Company Number: US-AMGEN-USASP2015069976

PATIENT
  Age: 82 Year
  Sex: Male

DRUGS (1)
  1. ENBREL [Suspect]
     Active Substance: ETANERCEPT
     Indication: RHEUMATOID ARTHRITIS
     Dosage: UNK
     Route: 065

REACTIONS (10)
  - Electrolyte imbalance [Unknown]
  - Gait disturbance [Unknown]
  - Cellulitis [Recovered/Resolved]
  - Rheumatoid arthritis [Unknown]
  - Rash macular [Not Recovered/Not Resolved]
  - Injection site reaction [Unknown]
  - Activities of daily living impaired [Unknown]
  - Dysstasia [Unknown]
  - Asthenia [Unknown]
  - Injection site erythema [Unknown]

NARRATIVE: CASE EVENT DATE: 2015
